FAERS Safety Report 9256275 (Version 1)
Quarter: 2013Q2

REPORT INFORMATION
  Report Type: Spontaneous
  Country: US (occurrence: US)
  Receive Date: 20130425
  Receipt Date: 20130425
  Transmission Date: 20140414
  Serious: Yes (Other)
  Sender: FDA-Public Use
  Company Number: US-AMGEN-USASP2012071845

PATIENT
  Age: 79 Year
  Sex: Male
  Weight: 183 kg

DRUGS (1)
  1. NPLATE [Suspect]
     Indication: IDIOPATHIC THROMBOCYTOPENIC PURPURA
     Dosage: 40 MUG (5MCG/KG), QWK
     Route: 058
     Dates: start: 20120222

REACTIONS (2)
  - Pain in extremity [Not Recovered/Not Resolved]
  - Asthenia [Unknown]
